FAERS Safety Report 6902699-4 (Version None)
Quarter: 2010Q3

REPORT INFORMATION
  Report Type: 
  Country: None (occurrence: None)
  Receive Date: 20100803
  Receipt Date: 20080730
  Transmission Date: 20110219
  Serious: No
  Sender: FDA-Public Use
  Company Number: US-PFIZER INC-2008049570

PATIENT
  Sex: Female
  Weight: 79.4 kg

DRUGS (3)
  1. LYRICA [Suspect]
     Indication: MUSCULOSKELETAL PAIN
     Route: 048
     Dates: start: 20070809, end: 20080101
  2. LYRICA [Suspect]
     Indication: NEURALGIA
  3. CYCLOBENZAPRINE [Concomitant]
     Dates: start: 20070809

REACTIONS (1)
  - WEIGHT INCREASED [None]
